FAERS Safety Report 5209656-7 (Version None)
Quarter: 2006Q4

REPORT INFORMATION
  Report Type: 
  Country: None (occurrence: None)
  Receive Date: 20061122
  Receipt Date: 20060504
  Transmission Date: 20070319
  Serious: Yes (Other)
  Sender: FDA-Public Use
  Company Number: 2005098079

PATIENT

DRUGS (2)
  1. LIPITOR [Suspect]
     Indication: ILL-DEFINED DISORDER
     Dosage: 40 MG, ORAL
     Route: 048
     Dates: start: 20040401
  2. LISINOPRIL [Suspect]
     Indication: ILL-DEFINED DISORDER

REACTIONS (6)
  - ASTHENIA [None]
  - DIABETES MELLITUS [None]
  - JOINT STIFFNESS [None]
  - MYALGIA [None]
  - RENAL IMPAIRMENT [None]
  - RHABDOMYOLYSIS [None]
